FAERS Safety Report 5347473-8 (Version None)
Quarter: 2007Q2

REPORT INFORMATION
  Report Type: 
  Country: None (occurrence: None)
  Receive Date: 20070606
  Receipt Date: 20070529
  Transmission Date: 20071010
  Serious: Yes (Hospitalization, Disabling)
  Sender: FDA-Public Use
  Company Number: PHRM2007FR01527

PATIENT
  Age: 75 Year
  Sex: Male

DRUGS (2)
  1. ZOMETA [Suspect]
     Indication: MULTIPLE MYELOMA
     Route: 042
     Dates: end: 20051201
  2. ZOMETA [Suspect]
     Route: 042
     Dates: start: 20060401, end: 20060801

REACTIONS (6)
  - FACE AND MOUTH X-RAY ABNORMAL [None]
  - GINGIVAL HYPERTROPHY [None]
  - IMPAIRED HEALING [None]
  - PAIN IN JAW [None]
  - SOFT TISSUE DISORDER [None]
  - TOOTH EXTRACTION [None]
